FAERS Safety Report 12350270 (Version 1)
Quarter: 2016Q2

REPORT INFORMATION
  Report Type: Spontaneous
  Country: US (occurrence: None)
  Receive Date: 20160509
  Receipt Date: 20160509
  Transmission Date: 20160815
  Serious: Yes (Other)
  Sender: FDA-Public Use
  Company Number: None

PATIENT
  Age: 72 Year
  Sex: Female
  Weight: 56.25 kg

DRUGS (18)
  1. MULTI-VITAMIN WITHOUT IRON [Concomitant]
  2. GROUND CLOVES [Concomitant]
  3. MAPLE SYRUP [Concomitant]
  4. BLACK CARDAMOM POD [Concomitant]
  5. BLACK PEPPER. [Concomitant]
     Active Substance: BLACK PEPPER
  6. MAGNESIUM GLYCINATE [Concomitant]
     Active Substance: MAGNESIUM GLYCINATE
  7. MICROCRYSTALLINE HYDROXYAPATITE CONCENTRATE [Concomitant]
  8. PROBIOTIC HPSS [Concomitant]
  9. TURMERIC POWDER [Concomitant]
  10. EVENING PRIMROSE OIL [Concomitant]
     Active Substance: EVENING PRIMROSE OIL
  11. GINGER ROOT [Concomitant]
     Active Substance: GINGER
  12. EPA-DHA [Concomitant]
  13. VITAMIN D3 [Concomitant]
     Active Substance: CHOLECALCIFEROL
  14. MINOCYCLINE HCL [Suspect]
     Active Substance: MINOCYCLINE HYDROCHLORIDE
     Indication: DERMATITIS
     Dosage: 1 TABLET(S) ONCE A DAY TAKEN BY MOUTH
     Route: 048
     Dates: start: 20160428, end: 20160505
  15. METRONIDAZOLE. [Concomitant]
     Active Substance: METRONIDAZOLE
  16. VITAMIN E [Concomitant]
     Active Substance: .ALPHA.-TOCOPHEROL
  17. NON-DAIRY MILK [Concomitant]
  18. GARLIC. [Concomitant]
     Active Substance: GARLIC

REACTIONS (3)
  - Panic attack [None]
  - Confusional state [None]
  - Hallucination [None]

NARRATIVE: CASE EVENT DATE: 20160504
